FAERS Safety Report 23212501 (Version 1)
Quarter: 2023Q4

REPORT INFORMATION
  Report Type: Spontaneous
  Country: BR (occurrence: BR)
  Receive Date: 20231121
  Receipt Date: 20231121
  Transmission Date: 20240109
  Serious: Yes (Other)
  Sender: FDA-Public Use
  Company Number: BR-002147023-NVSC2023BR243214

PATIENT
  Sex: Female

DRUGS (13)
  1. ATORVASTATIN [Suspect]
     Active Substance: ATORVASTATIN
     Indication: Blood cholesterol
     Dosage: 2 DF, QD (MANY YEARS AGO)
     Route: 048
  2. BRIMONIDINE [Suspect]
     Active Substance: BRIMONIDINE TARTRATE
     Indication: Glaucoma
     Dosage: 2 %, (MANY YEARS AGO, 1 DROP EACH EYE TWICE PER DAY, EYEPIECE)
     Route: 065
  3. FLUOXETINE [Suspect]
     Active Substance: FLUOXETINE HYDROCHLORIDE
     Indication: Anxiety
     Dosage: 1 DF, BID (30 YEARS AGO)
     Route: 048
  4. TRAVOPROST [Suspect]
     Active Substance: TRAVOPROST
     Indication: Glaucoma
     Dosage: 0.04 %, (MANY YEARS AGO, 1 DROP EACH EYE ONCE PER DAY, EYEPIECE)
     Route: 065
  5. BISOPROLOL FUMARATE [Concomitant]
     Active Substance: BISOPROLOL FUMARATE
     Indication: Cardiac disorder
     Dosage: 1 DF, QD (MANY YEARS AGO)
     Route: 048
  6. BISOPROLOL FUMARATE [Concomitant]
     Active Substance: BISOPROLOL FUMARATE
     Dosage: UNK, STRENGTH: 10 MG
     Route: 065
  7. BISOPROLOL FUMARATE [Concomitant]
     Active Substance: BISOPROLOL FUMARATE
     Dosage: UNK, STRENGTH: 2.5 MG
     Route: 065
  8. BISOPROLOL FUMARATE [Concomitant]
     Active Substance: BISOPROLOL FUMARATE
     Dosage: UNK, STRENGTH: 5 MG
     Route: 065
  9. CIPROFIBRATE [Concomitant]
     Active Substance: CIPROFIBRATE
     Indication: Blood triglycerides
     Dosage: 1 DF, QD  (MANY YEARS AGO)
     Route: 048
  10. VENAFLON [Concomitant]
     Indication: Cardiovascular disorder
     Dosage: 1 DF, BID  (MANY YEARS AGO, 450 MG+50 MG)
     Route: 048
  11. VENAFLON [Concomitant]
     Dosage: UNK, STRENGTH: 100 MG
     Route: 065
  12. VENAFLON [Concomitant]
     Dosage: UNK, STRENGTH: 50 MG
     Route: 065
  13. VENAFLON [Concomitant]
     Dosage: UNK, STRENGTH: 900 MG
     Route: 065

REACTIONS (1)
  - Cardiac failure [Unknown]
